FAERS Safety Report 23385716 (Version 1)
Quarter: 2024Q1

REPORT INFORMATION
  Report Type: Spontaneous
  Country: GB (occurrence: GB)
  Receive Date: 20240110
  Receipt Date: 20240110
  Transmission Date: 20240410
  Serious: Yes (Hospitalization)
  Sender: FDA-Public Use
  Company Number: None

PATIENT
  Age: 26 Year
  Sex: Female

DRUGS (1)
  1. OZEMPIC [Suspect]
     Active Substance: SEMAGLUTIDE
     Indication: Weight control
     Dosage: 0.5 (UNIT, FREQUENCY NOT REPORTED)

REACTIONS (4)
  - Illness [Recovered/Resolved]
  - Retching [Recovered/Resolved]
  - Blood glucose decreased [Recovered/Resolved]
  - Product use in unapproved indication [Unknown]
